FAERS Safety Report 24352860 (Version 1)
Quarter: 2024Q3

REPORT INFORMATION
  Report Type: Spontaneous
  Country: CA (occurrence: CA)
  Receive Date: 20240923
  Receipt Date: 20240923
  Transmission Date: 20241017
  Serious: Yes (Other)
  Sender: TAKEDA
  Company Number: CA-TAKEDA-2024TUS093134

PATIENT
  Age: 82 Year
  Sex: Male

DRUGS (25)
  1. ALUNBRIG [Suspect]
     Active Substance: BRIGATINIB
     Indication: Pancreatic carcinoma metastatic
     Dosage: UNK
     Route: 065
  2. ALUNBRIG [Suspect]
     Active Substance: BRIGATINIB
     Indication: Disease progression
  3. AMILOMER [Suspect]
     Active Substance: AMILOMER
     Indication: Product used for unknown indication
     Dosage: UNK
     Route: 065
  4. BEVACIZUMAB [Suspect]
     Active Substance: BEVACIZUMAB
     Indication: Pancreatic carcinoma metastatic
     Dosage: UNK
     Route: 065
  5. CAPECITABINE [Suspect]
     Active Substance: CAPECITABINE
     Indication: Pancreatic carcinoma metastatic
     Dosage: UNK
     Route: 065
  6. CAPECITABINE [Suspect]
     Active Substance: CAPECITABINE
     Indication: Brain cancer metastatic
  7. CISPLATIN [Suspect]
     Active Substance: CISPLATIN
     Indication: Brain cancer metastatic
     Dosage: UNK
     Route: 065
  8. DOCETAXEL [Suspect]
     Active Substance: DOCETAXEL\DOCETAXEL ANHYDROUS
     Indication: Pancreatic carcinoma metastatic
     Dosage: UNK
     Route: 065
  9. ENHERTU [Suspect]
     Active Substance: FAM-TRASTUZUMAB DERUXTECAN-NXKI
     Indication: Pancreatic carcinoma metastatic
     Dosage: UNK
     Route: 065
  10. GEMCITABINE [Suspect]
     Active Substance: GEMCITABINE
     Indication: Pancreatic carcinoma metastatic
     Dosage: UNK
     Route: 065
  11. KEYTRUDA [Suspect]
     Active Substance: PEMBROLIZUMAB
     Indication: Pancreatic carcinoma metastatic
     Dosage: UNK
     Route: 065
  12. KEYTRUDA [Suspect]
     Active Substance: PEMBROLIZUMAB
     Indication: Brain cancer metastatic
  13. LORBRENA [Suspect]
     Active Substance: LORLATINIB
     Indication: Pancreatic carcinoma metastatic
     Dosage: UNK
     Route: 065
  14. LORBRENA [Suspect]
     Active Substance: LORLATINIB
     Indication: Pulmonary mass
  15. MITOMYCIN [Suspect]
     Active Substance: MITOMYCIN
     Indication: Pancreatic carcinoma metastatic
     Dosage: UNK
     Route: 050
  16. OXALIPLATIN [Suspect]
     Active Substance: OXALIPLATIN
     Indication: Pancreatic carcinoma metastatic
     Dosage: UNK
     Route: 065
  17. PACLITAXEL [Suspect]
     Active Substance: PACLITAXEL
     Indication: Pancreatic carcinoma metastatic
     Dosage: UNK
     Route: 042
  18. PEMETREXED [Suspect]
     Active Substance: PEMETREXED
     Indication: Pancreatic carcinoma metastatic
     Dosage: UNK
     Route: 065
  19. PERJETA [Suspect]
     Active Substance: PERTUZUMAB
     Indication: Pancreatic carcinoma metastatic
     Dosage: UNK
     Route: 065
  20. PROLIA [Suspect]
     Active Substance: DENOSUMAB
     Indication: Pancreatic carcinoma metastatic
     Dosage: UNK
     Route: 065
  21. ROZLYTREK [Suspect]
     Active Substance: ENTRECTINIB
     Indication: Pancreatic carcinoma metastatic
     Dosage: UNK
     Route: 065
  22. TAGRISSO [Suspect]
     Active Substance: OSIMERTINIB
     Indication: Pancreatic carcinoma metastatic
     Dosage: UNK
     Route: 065
  23. TRASTUZUMAB [Suspect]
     Active Substance: TRASTUZUMAB
     Indication: Pancreatic carcinoma metastatic
     Dosage: UNK
     Route: 065
  24. ETHIODIZED OIL [Suspect]
     Active Substance: ETHIODIZED OIL
     Indication: Product used for unknown indication
     Dosage: UNK
     Route: 065
  25. IRINOTECAN HYDROCHLORIDE [Concomitant]
     Active Substance: IRINOTECAN HYDROCHLORIDE
     Dosage: UNK
     Route: 042

REACTIONS (2)
  - No adverse event [Unknown]
  - Drug ineffective [Unknown]
